FAERS Safety Report 17967980 (Version 4)
Quarter: 2021Q1

REPORT INFORMATION
  Report Type: Spontaneous
  Country: US (occurrence: US)
  Receive Date: 20200701
  Receipt Date: 20210305
  Transmission Date: 20210419
  Serious: Yes (Hospitalization)
  Sender: FDA-Public Use
  Company Number: US-GLAXOSMITHKLINE-US2020AMR115171

PATIENT
  Sex: Female

DRUGS (2)
  1. SYMBICORT [Concomitant]
     Active Substance: BUDESONIDE\FORMOTEROL FUMARATE DIHYDRATE
     Indication: PRODUCT USED FOR UNKNOWN INDICATION
     Dosage: UNK
  2. NUCALA [Suspect]
     Active Substance: MEPOLIZUMAB
     Indication: ASTHMA
     Dosage: 100 MG, Z, (MONTHLY)
     Dates: start: 20200313

REACTIONS (8)
  - Oxygen saturation decreased [Unknown]
  - Weight increased [Unknown]
  - Cough [Recovered/Resolved]
  - Dysphonia [Unknown]
  - Asthma [Unknown]
  - Swelling face [Unknown]
  - Hospitalisation [Unknown]
  - Alopecia [Unknown]
